FAERS Safety Report 10007306 (Version 1)
Quarter: 2014Q1

REPORT INFORMATION
  Report Type: Spontaneous
  Country: US (occurrence: US)
  Receive Date: 20140313
  Receipt Date: 20140313
  Transmission Date: 20141002
  Serious: No
  Sender: FDA-Public Use
  Company Number: US-009507513-1402USA006688

PATIENT
  Sex: Female
  Weight: 89.8 kg

DRUGS (7)
  1. OXYTROL FOR WOMEN [Suspect]
     Indication: NOCTURIA
     Dosage: 3.9 MG, QD
     Route: 062
  2. ARIMIDEX [Concomitant]
     Indication: BREAST CANCER
     Dosage: UNK, UNKNOWN
  3. DILTIAZEM XR [Concomitant]
     Indication: HYPERTENSION
     Dosage: UNK, UNKNOWN
  4. LOSARTAN POTASSIUM [Concomitant]
     Indication: HYPERTENSION
     Dosage: UNK, UNKNOWN
  5. LYRICA [Concomitant]
     Indication: NEUROPATHY PERIPHERAL
     Dosage: UNK, UNKNOWN
  6. NEXIUM [Concomitant]
     Indication: GASTROOESOPHAGEAL REFLUX DISEASE
     Dosage: UNK, UNKNOWN
  7. PRAMIPEXOLE [Concomitant]
     Indication: RESTLESS LEGS SYNDROME
     Dosage: UNK, UNKNOWN

REACTIONS (2)
  - Drug ineffective [Unknown]
  - Product closure removal difficult [Unknown]
